FAERS Safety Report 20236019 (Version 1)
Quarter: 2021Q4

REPORT INFORMATION
  Report Type: Spontaneous
  Country: FR (occurrence: FR)
  Receive Date: 20211228
  Receipt Date: 20211228
  Transmission Date: 20220304
  Serious: Yes (Hospitalization, Disabling, Congenital Anomaly, Other)
  Sender: FDA-Public Use
  Company Number: FR-ABBVIE-21K-056-4209856-00

PATIENT
  Sex: Male

DRUGS (1)
  1. VALPROATE SODIUM [Suspect]
     Active Substance: VALPROATE SODIUM
     Indication: Maternal exposure timing unspecified
     Route: 064

REACTIONS (30)
  - Dysmorphism [Unknown]
  - Spine malformation [Unknown]
  - Posture abnormal [Unknown]
  - Speech disorder [Unknown]
  - Speech disorder developmental [Unknown]
  - Visual acuity reduced [Unknown]
  - Mechanical urticaria [Unknown]
  - Astigmatism [Unknown]
  - Kyphosis [Unknown]
  - Scoliosis [Unknown]
  - Foetal exposure during pregnancy [Unknown]
  - Behaviour disorder [Unknown]
  - Muscle disorder [Unknown]
  - Psychomotor skills impaired [Unknown]
  - Fine motor delay [Unknown]
  - Apraxia [Unknown]
  - Dysgraphia [Unknown]
  - Language disorder [Unknown]
  - Hypotonia [Unknown]
  - Dyslexia [Unknown]
  - Heterophoria [Unknown]
  - Ligament laxity [Unknown]
  - Altered visual depth perception [Unknown]
  - School refusal [Unknown]
  - Visual impairment [Unknown]
  - Headache [Unknown]
  - Learning disorder [Unknown]
  - Hypertonia [Unknown]
  - Disturbance in attention [Unknown]
  - Developmental delay [Unknown]

NARRATIVE: CASE EVENT DATE: 20090528
